FAERS Safety Report 6135646-6 (Version None)
Quarter: 2009Q1

REPORT INFORMATION
  Report Type: 
  Country: None (occurrence: None)
  Receive Date: 20090327
  Receipt Date: 20090107
  Transmission Date: 20090719
  Serious: No
  Sender: FDA-Public Use
  Company Number: US-ASTRAZENECA-2009UW00442

PATIENT
  Age: 55 Year
  Sex: Female
  Weight: 37.2 kg

DRUGS (6)
  1. ZESTRIL [Suspect]
     Indication: BLOOD PRESSURE
     Route: 048
  2. ERYTHROCYMIN ETHYLSUCCINATE [Concomitant]
     Dosage: 4 TEASPOON
     Route: 048
     Dates: start: 19880101
  3. LANSOPRAZOLE [Concomitant]
     Indication: ABDOMINAL DISCOMFORT
  4. HORMONES NOS [Concomitant]
     Indication: HORMONE REPLACEMENT THERAPY
  5. CODEINE, PHENOBARB ELIXER [Concomitant]
     Indication: PAIN
  6. ATENOLOL [Concomitant]
     Indication: BLOOD PRESSURE
     Route: 048

REACTIONS (3)
  - HEADACHE [None]
  - OEDEMA MOUTH [None]
  - WEIGHT DECREASED [None]
